FAERS Safety Report 5777320-1 (Version None)
Quarter: 2008Q2

REPORT INFORMATION
  Report Type: 
  Country: None (occurrence: None)
  Receive Date: 20080618
  Receipt Date: 20080610
  Transmission Date: 20081010
  Serious: Yes (Other)
  Sender: FDA-Public Use
  Company Number: PHHY2008NL11039

PATIENT

DRUGS (3)
  1. ZOLEDRONATE T29581+SOLINF [Suspect]
     Indication: PROSTATE CANCER
     Dosage: 4 MG, UNK
     Route: 042
     Dates: start: 20050614, end: 20070130
  2. ZOLEDRONATE T29581+SOLINF [Suspect]
     Indication: METASTASES TO BONE
  3. LEUPRORELIN [Concomitant]
     Indication: PROSTATE CANCER
     Dosage: 11.25 MG, THREE MONTHLY

REACTIONS (1)
  - OSTEOMYELITIS [None]
